FAERS Safety Report 13740842 (Version 3)
Quarter: 2017Q3

REPORT INFORMATION
  Report Type: Spontaneous
  Country: FI (occurrence: FI)
  Receive Date: 20170711
  Receipt Date: 20170717
  Transmission Date: 20171127
  Serious: Yes (Other)
  Sender: FDA-Public Use
  Company Number: FI-009507513-1705FIN010282

PATIENT
  Sex: Female

DRUGS (4)
  1. CALCICHEW [Suspect]
     Active Substance: CALCIUM CARBONATE
     Dosage: DOUBLE DOSE
     Dates: start: 2000, end: 2007
  2. FOSAMAX [Suspect]
     Active Substance: ALENDRONATE SODIUM
     Dosage: ONE TABLET PER WEEK
     Route: 048
     Dates: start: 20041202, end: 200601
  3. KALCIPOS D [Suspect]
     Active Substance: CALCIUM CARBONATE\CHOLECALCIFEROL
     Dosage: DOUBLE DOSE
     Dates: start: 2000, end: 2007
  4. CANDESARTAN. [Concomitant]
     Active Substance: CANDESARTAN
     Indication: HYPERTENSION
     Dosage: 8 MG, QD

REACTIONS (13)
  - Vertebrobasilar insufficiency [Unknown]
  - Psoriasis [Recovering/Resolving]
  - Memory impairment [Unknown]
  - Visual impairment [Unknown]
  - Campylobacter infection [Unknown]
  - Movement disorder [Unknown]
  - Skin disorder [Unknown]
  - Lyme disease [Unknown]
  - Iron deficiency anaemia [Unknown]
  - Dyspnoea [Unknown]
  - Migraine [Unknown]
  - Chills [Unknown]
  - Sensation of foreign body [Unknown]

NARRATIVE: CASE EVENT DATE: 2006
